FAERS Safety Report 7309520-3 (Version None)
Quarter: 2011Q1

REPORT INFORMATION
  Report Type: 
  Country: None (occurrence: None)
  Receive Date: 20110223
  Receipt Date: 20110211
  Transmission Date: 20110831
  Serious: Yes (Hospitalization, Other)
  Sender: FDA-Public Use
  Company Number: BR-ASTRAZENECA-2010SE14937

PATIENT
  Age: 39 Year
  Sex: Male
  Weight: 100 kg

DRUGS (7)
  1. CRESTOR [Suspect]
     Route: 048
  2. ATACAND [Concomitant]
     Indication: HYPERTENSION
     Route: 048
     Dates: start: 20090601
  3. LIPLESS [Concomitant]
     Indication: HYPERCHOLESTEROLAEMIA
     Dosage: OD
     Route: 048
     Dates: start: 20080101, end: 20100301
  4. PLAVIX [Concomitant]
     Indication: ANTICOAGULANT THERAPY
     Route: 048
     Dates: start: 20090601
  5. SOMALGIN [Concomitant]
     Indication: ANTICOAGULANT THERAPY
     Route: 048
     Dates: start: 20090601
  6. ATENOLOL [Suspect]
     Indication: ARRHYTHMIA
     Route: 048
     Dates: start: 20090601
  7. CRESTOR [Suspect]
     Indication: HYPERCHOLESTEROLAEMIA
     Route: 048
     Dates: start: 20080101, end: 20101201

REACTIONS (4)
  - DRUG INEFFECTIVE [None]
  - HEART RATE IRREGULAR [None]
  - MYOCARDIAL INFARCTION [None]
  - BLOOD CHOLESTEROL ABNORMAL [None]
